FAERS Safety Report 16612134 (Version 2)
Quarter: 2019Q3

REPORT INFORMATION
  Report Type: Spontaneous
  Country: US (occurrence: US)
  Receive Date: 20190722
  Receipt Date: 20190731
  Transmission Date: 20191004
  Serious: Yes (Hospitalization)
  Sender: FDA-Public Use
  Company Number: US-ACTELION-A-US2019-193008

PATIENT
  Age: 11 Year
  Sex: Female
  Weight: 28.12 kg

DRUGS (8)
  1. OFLOXACIN. [Concomitant]
     Active Substance: OFLOXACIN
     Dosage: .3% OTIS SOLUTION, 3 DROP / QD
     Dates: end: 20190708
  2. TYLENOL [Concomitant]
     Active Substance: ACETAMINOPHEN
     Dosage: 3 G, Q 4HRS PRN
     Dates: start: 20190701
  3. ZOFRAN [Concomitant]
     Active Substance: ONDANSETRON HYDROCHLORIDE
     Dosage: 4 MG TABLET, DISSOLVE 6X PRN
  4. ADCIRCA [Concomitant]
     Active Substance: TADALAFIL
     Dosage: 10 MG, QD
  5. OXYCODONE [Concomitant]
     Active Substance: OXYCODONE
     Dosage: 5MG/ML TAKE 3 MLQ 6X, PRN
  6. MIRALAX [Concomitant]
     Active Substance: POLYETHYLENE GLYCOL 3350
     Dosage: UNK
     Route: 048
  7. OPSUMIT [Suspect]
     Active Substance: MACITENTAN
     Indication: PULMONARY HYPERTENSION
     Dosage: 10 MG, QD
     Route: 048
     Dates: start: 20190507
  8. AMICAR [Concomitant]
     Active Substance: AMINOCAPROIC ACID
     Dosage: 3 G, TID
     Dates: start: 20190701, end: 20190715

REACTIONS (8)
  - Tonsillectomy [Unknown]
  - Vomiting [Unknown]
  - Diarrhoea [Unknown]
  - Unevaluable event [Unknown]
  - Nausea [Unknown]
  - Headache [Unknown]
  - Product dose omission [Unknown]
  - Platelet disorder [Unknown]

NARRATIVE: CASE EVENT DATE: 20190701
